FAERS Safety Report 16934651 (Version 1)
Quarter: 2019Q4

REPORT INFORMATION
  Report Type: Spontaneous
  Country: US (occurrence: US)
  Receive Date: 20191018
  Receipt Date: 20191018
  Transmission Date: 20200122
  Serious: Yes (Hospitalization, Other)
  Sender: FDA-Public Use
  Company Number: US-CASPER PHARMA LLC-2019CAS000527

PATIENT
  Age: 46 Year
  Sex: Male

DRUGS (1)
  1. NEOMYCIN, POLYMYXIN, BACITRACIN, HC [Suspect]
     Active Substance: BACITRACIN ZINC\HYDROCORTISONE\NEOMYCIN SULFATE\POLYMYXIN B SULFATE
     Indication: ABDOMINAL ABSCESS
     Dosage: 1.32 MILLIGRAM/KILOGRAM INFUSED OVER1 HOUR EVERY 12 HOURS
     Route: 042

REACTIONS (4)
  - Respiratory arrest [Unknown]
  - Pulseless electrical activity [Unknown]
  - Paralysis [Unknown]
  - Neurotoxicity [Unknown]
